FAERS Safety Report 14471885 (Version 1)
Quarter: 2018Q1

REPORT INFORMATION
  Report Type: Spontaneous
  Country: GB (occurrence: GB)
  Receive Date: 20180131
  Receipt Date: 20180131
  Transmission Date: 20180509
  Serious: Yes (Hospitalization, Other)
  Sender: FDA-Public Use
  Company Number: GB-MYLANLABS-2018M1006276

PATIENT
  Age: 52 Year
  Sex: Male

DRUGS (6)
  1. LATANOPROST. [Concomitant]
     Active Substance: LATANOPROST
     Indication: ANGLE CLOSURE GLAUCOMA
     Dosage: AT NIGHT
     Route: 031
  2. ACETAZOLAMIDE. [Suspect]
     Active Substance: ACETAZOLAMIDE
     Dosage: SHORT COURSES WITH MAINTENANCE DOSE; 125MG THRICE A DAY
     Route: 048
  3. DEXAMETHASONE. [Concomitant]
     Active Substance: DEXAMETHASONE
     Indication: ANGLE CLOSURE GLAUCOMA
     Dosage: 6X/DAY
     Route: 031
  4. APRACLONIDINE [Concomitant]
     Active Substance: APRACLONIDINE HYDROCHLORIDE
     Indication: ANGLE CLOSURE GLAUCOMA
     Dosage: UNK
     Route: 031
  5. ACETAZOLAMIDE. [Suspect]
     Active Substance: ACETAZOLAMIDE
     Indication: ANGLE CLOSURE GLAUCOMA
     Dosage: 250MG
     Route: 048
  6. APRACLONIDINE [Concomitant]
     Active Substance: APRACLONIDINE HYDROCHLORIDE
     Dosage: MAINTENANCE DOSE; TWICE A DAY TO THE LEFT EYE
     Route: 031

REACTIONS (7)
  - Sterile pyuria [Recovered/Resolved]
  - Ureterolithiasis [Recovered/Resolved]
  - Acute kidney injury [Recovered/Resolved]
  - Anuria [Recovered/Resolved]
  - Metabolic acidosis [Recovered/Resolved]
  - Crystalluria [Recovered/Resolved]
  - Haematuria [Recovered/Resolved]
